FAERS Safety Report 5521631-1 (Version None)
Quarter: 2007Q4

REPORT INFORMATION
  Report Type: 
  Country: None (occurrence: None)
  Receive Date: 20071119
  Receipt Date: 20071119
  Transmission Date: 20080405
  Serious: Yes (Disabling)
  Sender: FDA-Public Use
  Company Number: None

PATIENT
  Age: 17 Year
  Sex: Female
  Weight: 90.7194 kg

DRUGS (1)
  1. MIRENA [Suspect]
     Indication: CONTRACEPTION
     Dates: start: 20070110, end: 20071118

REACTIONS (15)
  - ABDOMINAL PAIN [None]
  - ACNE [None]
  - AMENORRHOEA [None]
  - DEPRESSION [None]
  - DIZZINESS [None]
  - HYPOAESTHESIA [None]
  - INDIFFERENCE [None]
  - MIGRAINE [None]
  - MOOD SWINGS [None]
  - NAUSEA [None]
  - RASH [None]
  - SINUSITIS [None]
  - VAGINAL DISCHARGE [None]
  - VISUAL DISTURBANCE [None]
  - WEIGHT INCREASED [None]
